FAERS Safety Report 17439096 (Version 3)
Quarter: 2020Q1

REPORT INFORMATION
  Report Type: Spontaneous
  Country: US (occurrence: US)
  Receive Date: 20200220
  Receipt Date: 20200319
  Transmission Date: 20200409
  Serious: Yes (Other)
  Sender: FDA-Public Use
  Company Number: US-UNITED THERAPEUTICS-UNT-2020-002771

PATIENT
  Age: 55 Year
  Sex: Female
  Weight: 56.69 kg

DRUGS (5)
  1. REMODULIN [Suspect]
     Active Substance: TREPROSTINIL
     Dosage: 0.060 ?G/KG, CONTINUING
     Route: 041
  2. ADCIRCA [Concomitant]
     Active Substance: TADALAFIL
     Indication: PULMONARY ARTERIAL HYPERTENSION
     Dosage: UNK
     Route: 065
  3. REMODULIN [Suspect]
     Active Substance: TREPROSTINIL
     Indication: PULMONARY ARTERIAL HYPERTENSION
     Dosage: 0.062 ?G/KG, CONTINUING
     Route: 041
     Dates: start: 20171017
  4. ELIQUIS [Concomitant]
     Active Substance: APIXABAN
     Indication: PRODUCT USED FOR UNKNOWN INDICATION
     Dosage: UNK
     Route: 065
  5. OPSUMIT [Concomitant]
     Active Substance: MACITENTAN
     Indication: PRODUCT USED FOR UNKNOWN INDICATION
     Dosage: UNK
     Route: 065

REACTIONS (9)
  - Hepatic cirrhosis [Unknown]
  - Cough [Unknown]
  - Weight decreased [Unknown]
  - Flatulence [Unknown]
  - Dyspnoea exertional [Unknown]
  - Dyspnoea at rest [Unknown]
  - Mucous stools [Unknown]
  - Heart rate increased [Unknown]
  - Diverticulum [Unknown]

NARRATIVE: CASE EVENT DATE: 201912
